FAERS Safety Report 4386139-8 (Version None)
Quarter: 2004Q2

REPORT INFORMATION
  Report Type: 
  Country: None (occurrence: None)
  Receive Date: 20040625
  Receipt Date: 20040625
  Transmission Date: 20050107
  Serious: No
  Sender: FDA-Public Use
  Company Number: None

PATIENT
  Age: 57 Year

DRUGS (3)
  1. FENTANYL [Suspect]
     Indication: ANAESTHESIA
     Dates: start: 20030915
  2. MIDAZOLAM HCL [Suspect]
     Dates: start: 20030915
  3. MORPHINE [Suspect]
     Dates: start: 20030915

REACTIONS (4)
  - LARYNGOSPASM [None]
  - OXYGEN SATURATION DECREASED [None]
  - POST PROCEDURAL COMPLICATION [None]
  - RESPIRATORY DEPRESSION [None]
